FAERS Safety Report 9341764 (Version 2)
Quarter: 2013Q4

REPORT INFORMATION
  Report Type: Spontaneous
  Country: AU (occurrence: AU)
  Receive Date: 20130611
  Receipt Date: 20131126
  Transmission Date: 20140711
  Serious: Yes (Hospitalization)
  Sender: FDA-Public Use
  Company Number: AU-B.I. PHARMACEUTICALS,INC./RIDGEFIELD-2013-AU-00705AU

PATIENT
  Age: 83 Year
  Sex: Male
  Weight: 78 kg

DRUGS (4)
  1. PRADAXA [Suspect]
     Indication: ATRIAL FIBRILLATION
     Dosage: 220 MG
     Dates: start: 201109
  2. PRADAXA [Suspect]
     Indication: ATRIAL FIBRILLATION
  3. ATACAND PLUS [Concomitant]
     Indication: HYPERTENSION
     Dosage: 16/12.5 MG,
  4. ATORVASTATIN [Concomitant]
     Dosage: 40 MG

REACTIONS (1)
  - Transient ischaemic attack [Recovered/Resolved]
